FAERS Safety Report 4711831-2 (Version None)
Quarter: 2005Q2

REPORT INFORMATION
  Report Type: 
  Country: None (occurrence: None)
  Receive Date: 20050629
  Receipt Date: 20050524
  Transmission Date: 20051028
  Serious: No
  Sender: FDA-Public Use
  Company Number: 05P-163-0301299-00

PATIENT
  Age: 69 Year
  Sex: Female
  Weight: 63.05 kg

DRUGS (6)
  1. HUMIRA [Suspect]
     Indication: RHEUMATOID ARTHRITIS
     Dosage: 40 MG, 1 IN 2 WK, SUBCUTANEOUS
     Route: 058
     Dates: start: 20040101, end: 20050401
  2. METHOTREXATE [Concomitant]
  3. VICODIN [Concomitant]
  4. ALPRAZOLAM [Concomitant]
  5. RANITIDINE HYDROCHLORIDE [Concomitant]
  6. LEXAPRO [Concomitant]

REACTIONS (1)
  - FATIGUE [None]
